FAERS Safety Report 8534296-1 (Version None)
Quarter: 2012Q3

REPORT INFORMATION
  Report Type: 
  Country: None (occurrence: None)
  Receive Date: 20120724
  Receipt Date: 20120713
  Transmission Date: 20120928
  Serious: Yes (Hospitalization, Disabling, Other)
  Sender: FDA-Public Use
  Company Number: JP-AMGEN-JPNSP2011055006

PATIENT
  Age: 61 Year
  Sex: Female
  Weight: 47 kg

DRUGS (31)
  1. ROMIPLOSTIM - KHK [Suspect]
     Indication: IDIOPATHIC THROMBOCYTOPENIC PURPURA
     Dosage: 1 MUG/KG, QWK
     Route: 058
     Dates: start: 20110816, end: 20110823
  2. PROMACTA [Concomitant]
     Dosage: 25 MG, QD
     Route: 048
     Dates: start: 20111107, end: 20111115
  3. PROMACTA [Concomitant]
     Route: 048
     Dates: start: 20111128, end: 20111205
  4. ROMIPLOSTIM - KHK [Suspect]
     Dosage: 3 MUG/KG, QD
     Route: 058
     Dates: start: 20110907, end: 20110907
  5. PREDNISOLONE [Concomitant]
     Route: 048
     Dates: start: 20110821, end: 20110823
  6. PREDNISOLONE [Concomitant]
     Route: 048
     Dates: start: 20111031, end: 20111107
  7. PREDNISOLONE [Concomitant]
     Route: 048
     Dates: start: 20111124, end: 20111220
  8. PROMACTA [Concomitant]
     Dosage: 37.5 MG, QD
     Route: 048
     Dates: start: 20111116, end: 20111118
  9. ROMIPLOSTIM - KHK [Suspect]
     Dosage: 2 MUG/KG, QWK
     Route: 058
     Dates: start: 20111203, end: 20111208
  10. ANABOLIC STEROIDS [Concomitant]
     Dosage: UNK MG, UNK
     Route: 065
  11. PROMACTA [Concomitant]
     Indication: IDIOPATHIC THROMBOCYTOPENIC PURPURA
     Dosage: 12.5 MG, QD
     Route: 048
     Dates: start: 20111101, end: 20111106
  12. FAMOTIDINE [Concomitant]
     Indication: GASTRITIS
     Dosage: UNCERTAINTY
     Route: 065
  13. PREDNISOLONE [Concomitant]
     Route: 048
     Dates: start: 20111120, end: 20111123
  14. PROMACTA [Concomitant]
     Route: 048
     Dates: start: 20111124, end: 20111127
  15. ROMIPLOSTIM - KHK [Suspect]
     Dosage: 4 MUG/KG, QD
     Route: 058
     Dates: start: 20110914, end: 20110914
  16. ROMIPLOSTIM - KHK [Suspect]
     Dosage: 1.5 MUG/KG, QWK
     Route: 058
     Dates: start: 20111215, end: 20111215
  17. PREDNISOLONE [Concomitant]
     Indication: IDIOPATHIC THROMBOCYTOPENIC PURPURA
     Route: 048
     Dates: start: 20110815, end: 20110818
  18. ROMIPLOSTIM - KHK [Suspect]
     Dosage: 2 MUG/KG, QD
     Route: 058
     Dates: start: 20110831, end: 20110831
  19. ROMIPLOSTIM - KHK [Suspect]
     Dosage: 1 MUG/KG, QD
     Route: 058
     Dates: start: 20111222, end: 20111222
  20. PREDNISOLONE [Concomitant]
     Route: 048
     Dates: start: 20110824, end: 20111030
  21. PREDNISOLONE [Concomitant]
     Route: 048
     Dates: start: 20111108, end: 20111119
  22. ALENDRONATE SODIUM [Concomitant]
     Indication: OSTEOPOROSIS
     Dosage: 5 MG, UNK
     Route: 065
  23. ROMIPLOSTIM - KHK [Suspect]
     Dosage: 0.7 MUG/KG, QWK
     Route: 058
     Dates: start: 20120112, end: 20120119
  24. ROMIPLOSTIM - KHK [Suspect]
     Dosage: 0.6 MUG/KG, QWK
     Route: 058
     Dates: start: 20120126, end: 20120209
  25. ROMIPLOSTIM - KHK [Suspect]
     Dosage: 0.5 MUG/KG, QD
     Route: 058
     Dates: start: 20120216, end: 20120216
  26. PREDNISOLONE [Concomitant]
     Route: 048
     Dates: start: 20111221
  27. PROMACTA [Concomitant]
     Dosage: 50 MG, QD
     Route: 048
     Dates: start: 20111119, end: 20111123
  28. PHENYTOIN SODIUM CAP [Concomitant]
     Indication: EPILEPSY
     Dosage: UNCERTAINTY
     Route: 065
  29. ROMIPLOSTIM - KHK [Suspect]
     Dosage: 5 MUG/KG, QWK
     Route: 058
     Dates: start: 20110921, end: 20111005
  30. ROMIPLOSTIM - KHK [Suspect]
     Dosage: 0.8 MUG/KG, QWK
     Route: 058
     Dates: start: 20111229, end: 20120105
  31. PREDNISOLONE [Concomitant]
     Route: 048
     Dates: start: 20110819, end: 20110820

REACTIONS (6)
  - EPISTAXIS [None]
  - RENAL DISORDER [None]
  - PLATELET COUNT DECREASED [None]
  - ANAEMIA [None]
  - MOUTH HAEMORRHAGE [None]
  - LIVER DISORDER [None]
